FAERS Safety Report 5431533-7 (Version None)
Quarter: 2007Q3

REPORT INFORMATION
  Report Type: 
  Country: None (occurrence: None)
  Receive Date: 20070830
  Receipt Date: 20070827
  Transmission Date: 20080115
  Serious: Yes (Death)
  Sender: FDA-Public Use
  Company Number: US-JNJFOC-20070801781

PATIENT
  Sex: Male
  Weight: 55.34 kg

DRUGS (5)
  1. CYCLOBENZAPRINE HCL [Suspect]
     Indication: NECK INJURY
     Route: 048
  2. CYCLOBENZAPRINE HCL [Suspect]
     Indication: MYALGIA
     Route: 048
  3. NAPROXEN [Suspect]
     Indication: PAIN
     Dosage: UNKNOWN
     Route: 048
  4. HYDROCODONE BITARTRATE [Suspect]
     Indication: PAIN
     Dosage: UNKNOWN
     Route: 048
  5. LORTAB [Concomitant]

REACTIONS (2)
  - DRUG TOXICITY [None]
  - VENTRICULAR HYPERTROPHY [None]
